FAERS Safety Report 17362289 (Version 1)
Quarter: 2020Q1

REPORT INFORMATION
  Report Type: Spontaneous
  Country: US (occurrence: US)
  Receive Date: 20200201
  Receipt Date: 20200201
  Transmission Date: 20200409
  Serious: No
  Sender: FDA-Public Use
  Company Number: None

PATIENT
  Age: 67 Year
  Sex: Female

DRUGS (2)
  1. TEMOZOLOMIDE 100 MG [Suspect]
     Active Substance: TEMOZOLOMIDE
  2. CAPECITABINE. [Suspect]
     Active Substance: CAPECITABINE

REACTIONS (2)
  - Blood urine present [None]
  - Platelet count decreased [None]

NARRATIVE: CASE EVENT DATE: 20200201
